FAERS Safety Report 7606676-X (Version None)
Quarter: 2011Q3

REPORT INFORMATION
  Report Type: 
  Country: None (occurrence: None)
  Receive Date: 20110713
  Receipt Date: 20110705
  Transmission Date: 20111222
  Serious: Yes (Other)
  Sender: FDA-Public Use
  Company Number: US-ROCHE-766575

PATIENT
  Sex: Female
  Weight: 59 kg

DRUGS (11)
  1. CLARAVIS [Suspect]
     Route: 065
     Dates: start: 20070301, end: 20070401
  2. SOTRET [Suspect]
     Indication: ACNE
     Route: 065
     Dates: start: 20050601, end: 20060201
  3. ACCUTANE [Suspect]
     Indication: ACNE
     Route: 048
     Dates: start: 20050607, end: 20060215
  4. ACCUTANE [Suspect]
     Route: 048
     Dates: start: 20070301, end: 20070430
  5. ACCUTANE [Suspect]
     Route: 048
     Dates: start: 20070502
  6. AMNESTEEM [Suspect]
     Route: 065
     Dates: start: 20070301, end: 20070401
  7. CLARAVIS [Suspect]
     Indication: ACNE
     Route: 065
     Dates: start: 20050601, end: 20060201
  8. AMNESTEEM [Suspect]
     Indication: ACNE
     Route: 065
     Dates: start: 20050601, end: 20060201
  9. SOTRET [Suspect]
     Route: 065
     Dates: start: 20070301, end: 20070401
  10. DEPO-PROVERA [Concomitant]
  11. AMOXICILLIN [Concomitant]

REACTIONS (8)
  - CROHN'S DISEASE [None]
  - INFLAMMATORY BOWEL DISEASE [None]
  - ALANINE AMINOTRANSFERASE INCREASED [None]
  - DRY SKIN [None]
  - ASPARTATE AMINOTRANSFERASE INCREASED [None]
  - URINARY TRACT INFECTION [None]
  - BLOOD TRIGLYCERIDES INCREASED [None]
  - IRRITABLE BOWEL SYNDROME [None]
